FAERS Safety Report 25084677 (Version 1)
Quarter: 2025Q1

REPORT INFORMATION
  Report Type: Spontaneous
  Country: BE (occurrence: BE)
  Receive Date: 20250317
  Receipt Date: 20250317
  Transmission Date: 20250409
  Serious: Yes (Other)
  Sender: ELI LILLY AND COMPANY
  Company Number: None

PATIENT
  Age: 53 Year
  Sex: Female
  Weight: 73 kg

DRUGS (13)
  1. MOUNJARO [Suspect]
     Active Substance: TIRZEPATIDE
     Indication: Weight control
     Dosage: 1 DOSAGE FORM, WEEKLY (1/W)
     Route: 058
     Dates: start: 20241206, end: 20250217
  2. MOUNJARO [Suspect]
     Active Substance: TIRZEPATIDE
     Indication: Weight control
     Dosage: 1 DOSAGE FORM, WEEKLY (1/W)
     Route: 058
     Dates: start: 20241206, end: 20250217
  3. MOUNJARO [Suspect]
     Active Substance: TIRZEPATIDE
     Indication: Weight control
     Dosage: 1 DOSAGE FORM, WEEKLY (1/W)
     Route: 058
     Dates: start: 20241206, end: 20250217
  4. MOUNJARO [Suspect]
     Active Substance: TIRZEPATIDE
     Indication: Weight control
     Dosage: 1 DOSAGE FORM, WEEKLY (1/W)
     Route: 058
     Dates: start: 20241206, end: 20250217
  5. MOUNJARO [Suspect]
     Active Substance: TIRZEPATIDE
     Indication: Hypertension
  6. MOUNJARO [Suspect]
     Active Substance: TIRZEPATIDE
     Indication: Hypertension
  7. MOUNJARO [Suspect]
     Active Substance: TIRZEPATIDE
     Indication: Hypertension
  8. MOUNJARO [Suspect]
     Active Substance: TIRZEPATIDE
     Indication: Hypertension
  9. CHOLESTYRAMINE [Suspect]
     Active Substance: CHOLESTYRAMINE
     Indication: Product used for unknown indication
     Route: 065
  10. EUTHYROX [Concomitant]
     Active Substance: LEVOTHYROXINE SODIUM
     Indication: Product used for unknown indication
  11. PANTOPRAZOLE SODIUM [Concomitant]
     Active Substance: PANTOPRAZOLE SODIUM
     Indication: Product used for unknown indication
  12. SUMATRIPTAN EG [Concomitant]
     Indication: Product used for unknown indication
  13. TOPAMAX [Concomitant]
     Active Substance: TOPIRAMATE
     Indication: Product used for unknown indication

REACTIONS (4)
  - Cystitis haemorrhagic [Recovering/Resolving]
  - Hepatic cytolysis [Recovering/Resolving]
  - Alanine aminotransferase increased [Recovering/Resolving]
  - Gamma-glutamyltransferase increased [Recovering/Resolving]

NARRATIVE: CASE EVENT DATE: 20250214
